FAERS Safety Report 10671851 (Version 1)
Quarter: 2014Q4

REPORT INFORMATION
  Report Type: Spontaneous
  Country: GB (occurrence: GB)
  Receive Date: 20141223
  Receipt Date: 20141223
  Transmission Date: 20150529
  Serious: Yes (Hospitalization)
  Sender: FDA-Public Use
  Company Number: PHHY2014GB163720

PATIENT
  Age: 76 Year
  Sex: Female

DRUGS (6)
  1. COCODAMOL [Suspect]
     Active Substance: ACETAMINOPHEN\CODEINE PHOSPHATE
     Indication: SCIATICA
     Dosage: 2 DF, UNK
     Route: 048
     Dates: start: 20141124, end: 20141130
  2. LYRICA [Suspect]
     Active Substance: PREGABALIN
     Indication: SCIATICA
     Dosage: 300 MG, BID
     Route: 048
     Dates: start: 20141124, end: 20141130
  3. ADCAL-D3 [Concomitant]
     Active Substance: CALCIUM CARBONATE\CHOLECALCIFEROL
  4. ALENDRONIC ACID [Concomitant]
     Active Substance: ALENDRONIC ACID
  5. TRAMADOL [Suspect]
     Active Substance: TRAMADOL
     Indication: SCIATICA
     Dosage: 50-100MG FOUR TIMES A DAY
     Route: 048
     Dates: start: 20141124, end: 20141130
  6. DIAZEPAM. [Suspect]
     Active Substance: DIAZEPAM
     Indication: SCIATICA
     Dosage: 2-4MG EVERY NIGHT
     Route: 048
     Dates: start: 20141124, end: 20141130

REACTIONS (3)
  - Delirium [Recovering/Resolving]
  - Hallucination [Recovering/Resolving]
  - Confusional state [Recovering/Resolving]

NARRATIVE: CASE EVENT DATE: 20141127
